FAERS Safety Report 9165133 (Version 1)
Quarter: 2013Q1

REPORT INFORMATION
  Report Type: Report from Study
  Country: US (occurrence: US)
  Receive Date: 20130315
  Receipt Date: 20130315
  Transmission Date: 20140127
  Serious: No
  Sender: FDA-Public Use
  Company Number: US-VERTEX PHARMACEUTICALS INC.-2013-003520

PATIENT
  Sex: Female
  Weight: 100 kg

DRUGS (7)
  1. VX-950 (TELAPREVIR) [Suspect]
     Indication: HEPATITIS C
     Dosage: 750 MG, TID
     Route: 048
     Dates: start: 20130301
  2. RIBAVIRIN [Suspect]
     Indication: HEPATITIS C
     Dosage: UNK
  3. PEGASYS [Suspect]
     Indication: HEPATITIS C
  4. ALLEGRA [Concomitant]
  5. ALBUTEROL [Concomitant]
  6. COMBIVENT [Concomitant]
  7. OMEPRAZOLE [Concomitant]

REACTIONS (3)
  - Influenza like illness [Unknown]
  - Faeces discoloured [Unknown]
  - Diarrhoea [Unknown]
